FAERS Safety Report 22070423 (Version 3)
Quarter: 2023Q1

REPORT INFORMATION
  Report Type: Spontaneous
  Country: GB (occurrence: GB)
  Receive Date: 20230307
  Receipt Date: 20230315
  Transmission Date: 20230418
  Serious: Yes (Other)
  Sender: FDA-Public Use
  Company Number: GB-MHRA-TPP9916385C3473839YC1677153735042

PATIENT
  Age: 70 Year
  Sex: Male
  Weight: 104 kg

DRUGS (35)
  1. BUPRENORPHINE [Suspect]
     Active Substance: BUPRENORPHINE
     Indication: Product used for unknown indication
     Dosage: UNK
     Route: 065
     Dates: start: 20161202
  2. BUPRENORPHINE [Concomitant]
     Active Substance: BUPRENORPHINE
     Indication: Product used for unknown indication
     Dosage: APPLY ONE PATCH TO DRY SKIN AND CHANGE ONCE A WEEK
     Dates: start: 20161130
  3. BUPRENORPHINE [Concomitant]
     Active Substance: BUPRENORPHINE
     Dosage: 1 DOSAGE FORM, 1/WEEK
     Dates: start: 20161130
  4. CALCIUM CARBONATE\SODIUM ALGINATE\SODIUM BICARBONATE [Concomitant]
     Active Substance: CALCIUM CARBONATE\SODIUM ALGINATE\SODIUM BICARBONATE
     Indication: Product used for unknown indication
     Dosage: 10-20MLS FOUR TIMES DAILY AS NEEDED
     Dates: start: 20211012
  5. CALCIUM CARBONATE\SODIUM ALGINATE\SODIUM BICARBONATE [Concomitant]
     Active Substance: CALCIUM CARBONATE\SODIUM ALGINATE\SODIUM BICARBONATE
     Dosage: 20 MILLILITRE, 4/DAY
     Dates: start: 20211012
  6. ASPIRIN [Concomitant]
     Active Substance: ASPIRIN
     Indication: Product used for unknown indication
     Dosage: TAKE ONE DAILY
     Dates: start: 20170907
  7. ASPIRIN [Concomitant]
     Active Substance: ASPIRIN
     Dosage: 1 DOSAGE FORM, 1/DAY
     Dates: start: 20170907
  8. ATORVASTATIN [Concomitant]
     Active Substance: ATORVASTATIN
     Indication: Product used for unknown indication
     Dosage: TAKE ONE TABLET AT NIGHT
     Dates: start: 20170530
  9. ATORVASTATIN [Concomitant]
     Active Substance: ATORVASTATIN
     Dosage: 1 DOSAGE FORM, 1/DAY
     Dates: start: 20170530
  10. BETAMETHASONE DIPROPIONATE [Concomitant]
     Active Substance: BETAMETHASONE DIPROPIONATE
     Indication: Product used for unknown indication
     Dosage: OFF LICENCE USE: 2 DROPS TO EACH EAR ONCE WEEKLY
     Dates: start: 20230120
  11. BETAMETHASONE DIPROPIONATE [Concomitant]
     Active Substance: BETAMETHASONE DIPROPIONATE
     Dosage: 4 DROP, 1/WEEK
     Dates: start: 20230120
  12. BISOPROLOL [Concomitant]
     Active Substance: BISOPROLOL
     Indication: Product used for unknown indication
     Dosage: TAKE ONE TABLET IN THE MORNING
     Dates: start: 20170530
  13. BISOPROLOL [Concomitant]
     Active Substance: BISOPROLOL
     Dosage: 1 DOSAGE FORM, 1/DAY
     Dates: start: 20170530
  14. CIPROFLOXACIN [Concomitant]
     Active Substance: CIPROFLOXACIN
     Indication: Product used for unknown indication
     Dosage: UPPER UTI, DIAGNOSED CLINICALLY- EMPIRIC OPTIO
     Dates: start: 20221213, end: 20221220
  15. CIPROFLOXACIN [Concomitant]
     Active Substance: CIPROFLOXACIN
     Indication: Urinary tract infection
     Dosage: UNK
     Dates: start: 20221213, end: 20221220
  16. BECLOMETHASONE DIPROPIONATE [Concomitant]
     Active Substance: BECLOMETHASONE DIPROPIONATE
     Indication: Product used for unknown indication
     Dosage: 1 SPRAY ONTO SKIN
     Dates: start: 20131011
  17. BECLOMETHASONE DIPROPIONATE [Concomitant]
     Active Substance: BECLOMETHASONE DIPROPIONATE
     Dosage: 1 DOSAGE FORM
     Dates: start: 20131011
  18. COCODAMOL [Concomitant]
     Active Substance: ACETAMINOPHEN\CODEINE PHOSPHATE
     Indication: Product used for unknown indication
     Dosage: TAKE 1 OR 2 CAPSULES 4 TIMES/DAY WHEN REQUIRED
     Dates: start: 20170826
  19. COCODAMOL [Concomitant]
     Active Substance: ACETAMINOPHEN\CODEINE PHOSPHATE
     Dosage: 2 DOSAGE FORM, 4/DAY
     Dates: start: 20170826
  20. FLUTICASONE FUROATE [Concomitant]
     Active Substance: FLUTICASONE FUROATE
     Indication: Product used for unknown indication
     Dosage: USE 2 SPRAYS EACH NOSTRIL ONCE DAILY
     Dates: start: 20230120
  21. FLUTICASONE FUROATE [Concomitant]
     Active Substance: FLUTICASONE FUROATE
     Dosage: 4 DOSAGE FORM, 1/DAY
     Dates: start: 20230120
  22. GABAPENTIN [Concomitant]
     Active Substance: GABAPENTIN
     Indication: Product used for unknown indication
     Dosage: TAKE ONE CAPSULE THREE TIMES A DAY
     Dates: start: 20130419
  23. GABAPENTIN [Concomitant]
     Active Substance: GABAPENTIN
     Dosage: 1 DOSAGE FORM, 3/DAY
     Dates: start: 20130419
  24. MEBEVERINE HYDROCHLORIDE [Concomitant]
     Active Substance: MEBEVERINE HYDROCHLORIDE
     Indication: Product used for unknown indication
     Dosage: TAKE ONE TABLET THREE TIMES DAY
     Dates: start: 20161210
  25. MEBEVERINE HYDROCHLORIDE [Concomitant]
     Active Substance: MEBEVERINE HYDROCHLORIDE
     Dosage: 1 DOSAGE FORM, 3/DAY
     Dates: start: 20161210
  26. MOVICOL [Concomitant]
     Active Substance: POLYETHYLENE GLYCOL 3350\POTASSIUM CHLORIDE\SODIUM BICARBONATE\SODIUM CHLORIDE
     Indication: Product used for unknown indication
     Dosage: TAKE ONE SACHET UP TO TWICE A DAY WHEN REQUIRED
     Dates: start: 20170609
  27. MOVICOL [Concomitant]
     Active Substance: POLYETHYLENE GLYCOL 3350\POTASSIUM CHLORIDE\SODIUM BICARBONATE\SODIUM CHLORIDE
     Dosage: 1 DOSAGE FORM, 2/DAY
     Dates: start: 20170609
  28. OMEPRAZOLE [Concomitant]
     Active Substance: OMEPRAZOLE
     Indication: Product used for unknown indication
     Dosage: TAKE TWO CAPSULE IN THE MORNING
     Dates: start: 20170530
  29. OMEPRAZOLE [Concomitant]
     Active Substance: OMEPRAZOLE
     Dosage: 2 DOSAGE FORM, 1/DAY
     Dates: start: 20170530
  30. RAMIPRIL [Concomitant]
     Active Substance: RAMIPRIL
     Indication: Product used for unknown indication
     Dosage: TAKE ONE DAILY
     Dates: start: 20170530
  31. RAMIPRIL [Concomitant]
     Active Substance: RAMIPRIL
     Dosage: 1 DOSAGE FORM, 1/DAY
     Dates: start: 20170530
  32. SERTRALINE [Concomitant]
     Active Substance: SERTRALINE HYDROCHLORIDE
     Indication: Product used for unknown indication
     Dosage: TAKE ONE TABLET EACH MORNING
     Dates: start: 20220725
  33. SERTRALINE [Concomitant]
     Active Substance: SERTRALINE HYDROCHLORIDE
     Dosage: 1 DOSAGE FORM, 1/DAY
     Dates: start: 20220725
  34. TAMSULOSIN HYDROCHLORIDE [Concomitant]
     Active Substance: TAMSULOSIN HYDROCHLORIDE
     Indication: Product used for unknown indication
     Dosage: TAKE ONE DAILY FOR BLADDER OUTFLOW SYMPTOMS / B...
     Dates: start: 20220304
  35. TAMSULOSIN HYDROCHLORIDE [Concomitant]
     Active Substance: TAMSULOSIN HYDROCHLORIDE
     Indication: Bladder disorder
     Dosage: 1 DOSAGE FORM, 1/DAY
     Dates: start: 20220304

REACTIONS (2)
  - Nightmare [Unknown]
  - Abnormal dreams [Unknown]
